FAERS Safety Report 24270616 (Version 5)
Quarter: 2024Q4

REPORT INFORMATION
  Report Type: Spontaneous
  Country: JP (occurrence: JP)
  Receive Date: 20240831
  Receipt Date: 20241018
  Transmission Date: 20250115
  Serious: Yes (Hospitalization, Other)
  Sender: EMD SERONO INC
  Company Number: JP-Merck Healthcare KGaA-2024045552

PATIENT
  Sex: Male
  Weight: 60 kg

DRUGS (16)
  1. METGLUCO [Suspect]
     Active Substance: METFORMIN HYDROCHLORIDE
     Indication: Diabetes mellitus
     Route: 048
  2. CLONAZEPAM [Suspect]
     Active Substance: CLONAZEPAM
     Indication: Paroxysmal perceptual alteration
     Route: 048
  3. CLONAZEPAM [Suspect]
     Active Substance: CLONAZEPAM
     Indication: Myoclonus
  4. CLONAZEPAM [Suspect]
     Active Substance: CLONAZEPAM
     Indication: Depression
  5. CLONAZEPAM [Suspect]
     Active Substance: CLONAZEPAM
     Indication: Anxiety
  6. CLONAZEPAM [Suspect]
     Active Substance: CLONAZEPAM
     Indication: Insomnia
  7. VILDAGLIPTIN [Suspect]
     Active Substance: VILDAGLIPTIN
     Indication: Product used for unknown indication
     Dosage: UNKNOWN
     Route: 048
  8. AMLODIPINE BESYLATE [Suspect]
     Active Substance: AMLODIPINE BESYLATE
     Indication: Product used for unknown indication
     Dosage: UNKNOWN
     Route: 048
  9. VALSARTAN [Concomitant]
     Active Substance: VALSARTAN
     Indication: Product used for unknown indication
  10. VIBEGRON [Concomitant]
     Active Substance: VIBEGRON
     Indication: Product used for unknown indication
  11. MIRABEGRON [Concomitant]
     Active Substance: MIRABEGRON
     Indication: Product used for unknown indication
  12. AMARYL [Concomitant]
     Active Substance: GLIMEPIRIDE
     Indication: Product used for unknown indication
  13. ACTOS [Concomitant]
     Active Substance: PIOGLITAZONE HYDROCHLORIDE
     Indication: Product used for unknown indication
  14. VOGLIBOSE [Concomitant]
     Active Substance: VOGLIBOSE
     Indication: Product used for unknown indication
  15. ACECOL [TEMOCAPRIL HYDROCHLORIDE] [Concomitant]
     Indication: Product used for unknown indication
  16. CYMBALTA [Concomitant]
     Active Substance: DULOXETINE HYDROCHLORIDE
     Indication: Product used for unknown indication

REACTIONS (15)
  - Seizure [Unknown]
  - Hallucination, auditory [Recovering/Resolving]
  - Hospitalisation [Unknown]
  - Tearfulness [Unknown]
  - Persistent depressive disorder [Unknown]
  - Dyspnoea [Unknown]
  - Stupor [Recovered/Resolved]
  - Anxiety [Unknown]
  - Dysphemia [Unknown]
  - Pruritus [Unknown]
  - Sleep apnoea syndrome [Unknown]
  - Rhinitis allergic [Unknown]
  - Scoliosis [Unknown]
  - Somnolence [Unknown]
  - Fatigue [Unknown]
